FAERS Safety Report 9331835 (Version 1)
Quarter: 2013Q2

REPORT INFORMATION
  Report Type: Spontaneous
  Country: US (occurrence: None)
  Receive Date: 20130603
  Receipt Date: 20130603
  Transmission Date: 20140414
  Serious: Yes (Hospitalization)
  Sender: FDA-Public Use
  Company Number: UTC-033158

PATIENT
  Age: 39 Year
  Sex: Female
  Weight: 88.1 kg

DRUGS (3)
  1. REMODULIN [Suspect]
     Indication: COR PULMONALE CHRONIC
     Dosage: 64.8 UG/KG (0.045 UG/KG, 1 IN 1 MIN) , INTRAVENOUS DRIP
     Route: 041
     Dates: start: 20130506
  2. REVATIO (SILDENAFIL CITRATE) (UNKNOWN) (SILDENAFIL) [Concomitant]
  3. ADCIRCA (TADALAFIL) (UNKNOWN) [Concomitant]

REACTIONS (2)
  - Nausea [None]
  - Vomiting [None]
